FAERS Safety Report 24646690 (Version 1)
Quarter: 2024Q4

REPORT INFORMATION
  Report Type: Spontaneous
  Country: US (occurrence: US)
  Receive Date: 20241121
  Receipt Date: 20241121
  Transmission Date: 20250114
  Serious: Yes (Other)
  Sender: HIKMA
  Company Number: US-MLMSERVICE-20241106-PI248783-00117-3

PATIENT

DRUGS (1)
  1. DEXAMETHASONE [Suspect]
     Active Substance: DEXAMETHASONE
     Indication: Aesthesioneuroblastoma
     Dosage: UNKNOWN (SINGLE COURSE), SINGLE
     Route: 065

REACTIONS (2)
  - Suicidal ideation [Recovered/Resolved]
  - Affective disorder [Recovered/Resolved]
